FAERS Safety Report 10693031 (Version 1)
Quarter: 2014Q4

REPORT INFORMATION
  Report Type: Spontaneous
  Country: US (occurrence: None)
  Receive Date: 20141223
  Receipt Date: 20141223
  Transmission Date: 20150529
  Serious: No
  Sender: FDA-Public Use
  Company Number: 1000070738

PATIENT
  Age: 73 Year
  Sex: Female

DRUGS (8)
  1. LINZESS [Suspect]
     Active Substance: LINACLOTIDE
     Indication: CONSTIPATION
     Route: 048
     Dates: start: 20140913, end: 20140913
  2. VITAMINS (NOS) [Concomitant]
     Active Substance: VITAMINS
  3. GABAPENTIN. [Concomitant]
     Active Substance: GABAPENTIN
  4. HYDROCODONE [Concomitant]
     Active Substance: HYDROCODONE
  5. TOLTERODINE [Concomitant]
     Active Substance: TOLTERODINE
  6. AVONEX [Concomitant]
     Active Substance: INTERFERON BETA-1A
  7. BACLOFEN. [Concomitant]
     Active Substance: BACLOFEN
  8. TRIMETHOPRIM. [Concomitant]
     Active Substance: TRIMETHOPRIM

REACTIONS (4)
  - Hypoaesthesia [None]
  - Off label use [None]
  - Pain in extremity [None]
  - Diarrhoea [None]

NARRATIVE: CASE EVENT DATE: 20140913
